FAERS Safety Report 10232674 (Version 2)
Quarter: 2014Q3

REPORT INFORMATION
  Report Type: Spontaneous
  Country: JP (occurrence: JP)
  Receive Date: 20140612
  Receipt Date: 20140710
  Transmission Date: 20150326
  Serious: Yes (Other)
  Sender: FDA-Public Use
  Company Number: JP-009507513-1406JPN003915

PATIENT
  Age: 46 Year
  Sex: Male
  Weight: 95.5 kg

DRUGS (4)
  1. TELAVIC [Suspect]
     Active Substance: TELAPREVIR
     Indication: HEPATITIS C
     Dosage: DAILY DOSE UNKNOWN
     Route: 048
  2. PEGINTRON [Suspect]
     Active Substance: PEGINTERFERON ALFA-2B
     Indication: HEPATITIS C
     Dosage: DAILY DOSAGE UNKNOWN
     Route: 058
  3. TACROLIMUS. [Concomitant]
     Active Substance: TACROLIMUS
     Dosage: 0.5 MG, AVERAGE DOSE INTERVAL:7.9 DAYS, FORMULATION: POR
     Route: 048
  4. REBETOL [Suspect]
     Active Substance: RIBAVIRIN
     Indication: HEPATITIS C
     Dosage: DAILY DOSAGE UNKNOWN
     Route: 048

REACTIONS (2)
  - Pancytopenia [Unknown]
  - Blood creatinine increased [Unknown]
